FAERS Safety Report 23241002 (Version 1)
Quarter: 2023Q4

REPORT INFORMATION
  Report Type: Spontaneous
  Country: US (occurrence: US)
  Receive Date: 20231129
  Receipt Date: 20231129
  Transmission Date: 20240110
  Serious: Yes (Hospitalization, Other)
  Sender: FDA-Public Use
  Company Number: US-CORCEPT THERAPEUTICS INC.-US-2023CRT002280

PATIENT

DRUGS (1)
  1. MIFEPRISTONE [Suspect]
     Active Substance: MIFEPRISTONE
     Indication: Cushing^s syndrome
     Dosage: UNK
     Route: 065

REACTIONS (4)
  - Haemorrhagic stroke [Unknown]
  - Hyperaldosteronism [Unknown]
  - Adrenal insufficiency [Unknown]
  - Thyroid disorder [Unknown]
